FAERS Safety Report 5330033-2 (Version None)
Quarter: 2007Q2

REPORT INFORMATION
  Report Type: 
  Country: None (occurrence: None)
  Receive Date: 20070521
  Receipt Date: 20070514
  Transmission Date: 20071010
  Serious: Yes (Death)
  Sender: FDA-Public Use
  Company Number: GR-ASTRAZENECA-2007AC00879

PATIENT
  Age: 38 Year
  Sex: Female

DRUGS (2)
  1. DIPRIVAN [Suspect]
     Route: 042
  2. XYLOCAIN [Concomitant]
     Route: 042

REACTIONS (2)
  - DEATH [None]
  - INTENTIONAL DRUG MISUSE [None]
